FAERS Safety Report 19092955 (Version 1)
Quarter: 2021Q2

REPORT INFORMATION
  Report Type: Other
  Country: DE (occurrence: DE)
  Receive Date: 20210405
  Receipt Date: 20210405
  Transmission Date: 20210717
  Serious: Yes (Hospitalization)
  Sender: FDA-Public Use
  Company Number: DE-ROCHE-2797766

PATIENT
  Age: 26 Year
  Sex: Female
  Weight: 61 kg

DRUGS (16)
  1. TAVEGIL [Concomitant]
     Active Substance: CLEMASTINE FUMARATE
     Dates: start: 20200227, end: 20200227
  2. FOLIC ACID. [Concomitant]
     Active Substance: FOLIC ACID
     Dates: start: 20200703, end: 20210105
  3. OCRELIZUMAB. [Suspect]
     Active Substance: OCRELIZUMAB
     Indication: RELAPSING-REMITTING MULTIPLE SCLEROSIS
     Route: 042
     Dates: start: 20200213, end: 20200227
  4. CORTISONE [Concomitant]
     Active Substance: CORTISONE
     Dates: start: 20200227, end: 20200227
  5. AMOXICILLIN;CLAVULANIC ACID [Concomitant]
     Active Substance: AMOXICILLIN\CLAVULANIC ACID
     Dates: start: 20200213, end: 20200218
  6. CORTISONE [Concomitant]
     Active Substance: CORTISONE
     Dates: start: 20200213, end: 20200213
  7. TAVEGIL [Concomitant]
     Active Substance: CLEMASTINE FUMARATE
     Dates: start: 20200213, end: 20200213
  8. DOTAREM [Concomitant]
     Active Substance: GADOTERATE MEGLUMINE
  9. FOLIC ACID. [Concomitant]
     Active Substance: FOLIC ACID
     Dates: start: 20200417, end: 20200614
  10. MAGNESIUM [Concomitant]
     Active Substance: MAGNESIUM
     Indication: PROPHYLAXIS
     Dates: start: 20200525, end: 20201115
  11. OCRELIZUMAB. [Suspect]
     Active Substance: OCRELIZUMAB
     Route: 042
     Dates: start: 20210311, end: 20210311
  12. CORTISONE [Concomitant]
     Active Substance: CORTISONE
     Dates: start: 20200124, end: 20200128
  13. FOLIC ACID. [Concomitant]
     Active Substance: FOLIC ACID
     Dates: start: 20200615, end: 20200702
  14. GLATIRAMER ACETATE. [Suspect]
     Active Substance: GLATIRAMER ACETATE
     Indication: RELAPSING-REMITTING MULTIPLE SCLEROSIS
     Route: 065
  15. FOLIC ACID. [Concomitant]
     Active Substance: FOLIC ACID
     Dates: start: 20191001, end: 20200416
  16. VITAMIN B12 [Concomitant]
     Active Substance: CYANOCOBALAMIN
     Dates: start: 20191017, end: 20200619

REACTIONS (2)
  - Maternal exposure timing unspecified [Unknown]
  - Gastroenteritis [Recovered/Resolved]

NARRATIVE: CASE EVENT DATE: 20210222
